FAERS Safety Report 4741795-7 (Version None)
Quarter: 2005Q3

REPORT INFORMATION
  Report Type: 
  Country: None (occurrence: None)
  Receive Date: 20050808
  Receipt Date: 20050725
  Transmission Date: 20060218
  Serious: Yes (Other)
  Sender: FDA-Public Use
  Company Number: S05-UKI-02692-01

PATIENT
  Age: 27 Year
  Sex: Female

DRUGS (2)
  1. CIPRALEX (ESCITALOPRAM) [Suspect]
     Indication: DEPRESSION
     Dosage: 5 MG QS PO
     Route: 048
     Dates: start: 20050625, end: 20050702
  2. SERTRALINE HCL [Concomitant]

REACTIONS (3)
  - CONTUSION [None]
  - EPILEPSY [None]
  - LOSS OF CONSCIOUSNESS [None]
